FAERS Safety Report 5336317-6 (Version None)
Quarter: 2007Q2

REPORT INFORMATION
  Report Type: 
  Country: None (occurrence: None)
  Receive Date: 20070523
  Receipt Date: 20070515
  Transmission Date: 20071010
  Serious: Yes (Other)
  Sender: FDA-Public Use
  Company Number: 2007SP009356

PATIENT

DRUGS (3)
  1. EPTIFIBATIDE (S-P) [Suspect]
     Indication: CORONARY ANGIOPLASTY
     Dates: start: 20070401
  2. ENOXAPARIN SODIUM [Suspect]
     Indication: CORONARY ANGIOPLASTY
     Dates: start: 20070401
  3. CLOPIDOGREL /01220702/ [Concomitant]

REACTIONS (1)
  - THROMBOSIS IN DEVICE [None]
